FAERS Safety Report 25115057 (Version 3)
Quarter: 2025Q2

REPORT INFORMATION
  Report Type: Spontaneous
  Country: CO (occurrence: CO)
  Receive Date: 20250324
  Receipt Date: 20250613
  Transmission Date: 20250717
  Serious: Yes (Hospitalization, Other)
  Sender: BIOMARIN
  Company Number: CO-BIOMARINAP-CO-2025-164739

PATIENT

DRUGS (1)
  1. BRINEURA [Suspect]
     Active Substance: CERLIPONASE ALFA
     Indication: Neuronal ceroid lipofuscinosis
     Dosage: 300 MILLIGRAM, QOW
     Route: 020
     Dates: start: 20190806

REACTIONS (6)
  - Device related infection [Not Recovered/Not Resolved]
  - Pyrexia [Not Recovered/Not Resolved]
  - Headache [Not Recovered/Not Resolved]
  - Purulent discharge [Not Recovered/Not Resolved]
  - Puncture site haemorrhage [Unknown]
  - Incision site impaired healing [Not Recovered/Not Resolved]

NARRATIVE: CASE EVENT DATE: 20250304
